FAERS Safety Report 5787169-1 (Version None)
Quarter: 2008Q2

REPORT INFORMATION
  Report Type: 
  Country: None (occurrence: None)
  Receive Date: 20080625
  Receipt Date: 20080423
  Transmission Date: 20081010
  Serious: No
  Sender: FDA-Public Use
  Company Number: US-BAUSCH-2008BL001865

PATIENT
  Age: 36 Year
  Sex: Male
  Weight: 108 kg

DRUGS (2)
  1. ALAWAY [Suspect]
     Indication: EYE PRURITUS
     Route: 047
     Dates: start: 20080417, end: 20080417
  2. ALAWAY [Suspect]
     Route: 047
     Dates: start: 20080421, end: 20080421

REACTIONS (9)
  - ABNORMAL SENSATION IN EYE [None]
  - CONTACT LENS INTOLERANCE [None]
  - EYE IRRITATION [None]
  - EYELID DISORDER [None]
  - GIANT PAPILLARY CONJUNCTIVITIS [None]
  - HEADACHE [None]
  - MEDICATION ERROR [None]
  - OCULAR DISCOMFORT [None]
  - VISION BLURRED [None]
